FAERS Safety Report 9295292 (Version 1)
Quarter: 2013Q1

REPORT INFORMATION
  Report Type: Spontaneous
  Country: US (occurrence: US)
  Receive Date: 20121227
  Receipt Date: 20121227
  Transmission Date: 20140127
  Serious: No
  Sender: FDA-Public Use
  Company Number: PHEH2012US020355

PATIENT
  Sex: Male
  Weight: 131 kg

DRUGS (1)
  1. AFINITOR [Suspect]
     Route: 048
     Dates: start: 20120704

REACTIONS (2)
  - Oral pain [None]
  - Fatigue [None]
